FAERS Safety Report 6311889-3 (Version None)
Quarter: 2009Q3

REPORT INFORMATION
  Report Type: 
  Country: None (occurrence: None)
  Receive Date: 20090817
  Receipt Date: 20090811
  Transmission Date: 20100115
  Serious: Yes (Other)
  Sender: FDA-Public Use
  Company Number: JP-BRISTOL-MYERS SQUIBB COMPANY-14627186

PATIENT
  Age: 62 Year
  Sex: Male

DRUGS (17)
  1. SPRYCEL [Suspect]
     Indication: ACUTE LYMPHOCYTIC LEUKAEMIA RECURRENT
     Dosage: 100MG: 14APR09-11MAY09 70MG(BID):12MAY2009-UNK + 10JUL09-ONG
     Route: 048
     Dates: start: 20090414
  2. CYCLOPHOSPHAMIDE [Suspect]
     Indication: ACUTE LYMPHOCYTIC LEUKAEMIA
     Route: 042
     Dates: start: 20090407, end: 20090407
  3. DAUNORUBICIN HCL [Suspect]
     Indication: ACUTE LYMPHOCYTIC LEUKAEMIA
     Route: 042
     Dates: start: 20090407, end: 20090409
  4. ONCOVIN [Suspect]
     Indication: ACUTE LYMPHOCYTIC LEUKAEMIA
     Route: 042
     Dates: start: 20090407, end: 20090428
  5. PREDNISOLONE [Suspect]
     Dosage: TABS
     Route: 048
     Dates: start: 20090407, end: 20090416
  6. METHOTREXATE [Suspect]
     Indication: ACUTE LYMPHOCYTIC LEUKAEMIA
     Route: 042
     Dates: start: 20090615, end: 20090616
  7. CYLOCIDE [Suspect]
     Indication: ACUTE LYMPHOCYTIC LEUKAEMIA
     Route: 042
     Dates: start: 20090616, end: 20090617
  8. IMATINIB MESILATE [Concomitant]
     Indication: ACUTE LYMPHOCYTIC LEUKAEMIA
     Dates: start: 20071031, end: 20090406
  9. NEUTROGIN [Concomitant]
     Dosage: 16APR09 TO 20APR09;THEN 21JUN09-27JUN09
     Route: 058
     Dates: start: 20090416, end: 20090627
  10. CYANOCOBALAMIN [Concomitant]
     Route: 048
  11. OMEPRAL [Concomitant]
     Route: 048
  12. BAKTAR [Concomitant]
     Dosage: 2 DF = 2TABS
     Route: 048
  13. CRAVIT [Concomitant]
     Dosage: HYDRATE FORM
     Route: 048
     Dates: start: 20090406, end: 20090419
  14. DIFLUCAN [Concomitant]
     Dosage: CAPS
     Route: 048
     Dates: start: 20090406, end: 20090419
  15. ETIZOLAM [Concomitant]
     Route: 048
  16. PILSICAINIDE HCL [Concomitant]
     Route: 048
  17. CARVEDILOL [Concomitant]
     Route: 048

REACTIONS (12)
  - ANAEMIA [None]
  - ARRHYTHMIA [None]
  - ATRIAL FIBRILLATION [None]
  - LYMPHOCYTE COUNT INCREASED [None]
  - MYALGIA [None]
  - NEUTROPHIL COUNT DECREASED [None]
  - PHLEBITIS [None]
  - PLATELET COUNT DECREASED [None]
  - PLEURAL EFFUSION [None]
  - RASH [None]
  - VASCULITIS [None]
  - WHITE BLOOD CELL COUNT DECREASED [None]
